FAERS Safety Report 8612377-1 (Version None)
Quarter: 2012Q3

REPORT INFORMATION
  Report Type: 
  Country: None (occurrence: None)
  Receive Date: 20120822
  Receipt Date: 20120813
  Transmission Date: 20120928
  Serious: Yes (Other)
  Sender: FDA-Public Use
  Company Number: PHHY2012JP070062

PATIENT
  Age: 63 Year
  Sex: Female

DRUGS (3)
  1. PREDNISOLONE [Suspect]
     Indication: BEHCET'S SYNDROME
     Dosage: 60 MG, PER DAY
     Dates: start: 20090901
  2. METHYLPREDNISOLONE [Suspect]
     Dosage: 1 G, DAILY
     Dates: start: 20090901
  3. INFLIXIMAB [Suspect]
     Dosage: 5 MG/KG, UNK
     Dates: start: 20091201

REACTIONS (5)
  - ARTHRALGIA [None]
  - TYPE IV HYPERSENSITIVITY REACTION [None]
  - GASTRIC ULCER HAEMORRHAGE [None]
  - GASTROINTESTINAL ULCER [None]
  - CYTOMEGALOVIRUS INFECTION [None]
